FAERS Safety Report 8222908-1 (Version None)
Quarter: 2012Q1

REPORT INFORMATION
  Report Type: 
  Country: None (occurrence: None)
  Receive Date: 20120320
  Receipt Date: 20120309
  Transmission Date: 20120608
  Serious: Yes (Hospitalization, Other)
  Sender: FDA-Public Use
  Company Number: ES-FRI-1000028746

PATIENT
  Age: 72 Year
  Sex: Male
  Weight: 67 kg

DRUGS (1)
  1. ROFLUMILAST [Suspect]
     Indication: CHRONIC OBSTRUCTIVE PULMONARY DISEASE
     Dosage: 500 MCG
     Route: 048
     Dates: start: 20110928, end: 20120127

REACTIONS (5)
  - WEIGHT DECREASED [None]
  - ATRIOVENTRICULAR BLOCK [None]
  - NASOPHARYNGITIS [None]
  - ASTHENIA [None]
  - DECREASED APPETITE [None]
